FAERS Safety Report 5875830-X (Version None)
Quarter: 2008Q3

REPORT INFORMATION
  Report Type: 
  Country: None (occurrence: None)
  Receive Date: 20080909
  Receipt Date: 20080828
  Transmission Date: 20090109
  Serious: Yes (Death, Other)
  Sender: FDA-Public Use
  Company Number: PL-PFIZER INC-2008065945

PATIENT
  Age: 60 Year
  Sex: Female

DRUGS (1)
  1. ZELDOX (CAPSULES) [Suspect]

REACTIONS (4)
  - ARTERIOSCLEROSIS [None]
  - CEREBRAL ARTERIOSCLEROSIS [None]
  - MYOCARDIAL INFARCTION [None]
  - PSYCHOTIC DISORDER [None]
